FAERS Safety Report 8910819 (Version 3)
Quarter: 2013Q2

REPORT INFORMATION
  Report Type: Spontaneous
  Country: US (occurrence: US)
  Receive Date: 20121115
  Receipt Date: 20130417
  Transmission Date: 20140414
  Serious: No
  Sender: FDA-Public Use
  Company Number: US-009507513-1211USA000377

PATIENT
  Age: 32 Year
  Sex: Female

DRUGS (3)
  1. NEXPLANON [Suspect]
     Dosage: 68 MG, 3 YEAR IMPLANT
     Route: 059
     Dates: start: 20121026, end: 20121026
  2. NEXPLANON [Suspect]
     Dosage: 65 UNK, 3 YEAR IMPLANT
     Route: 059
     Dates: start: 20121026, end: 20121026
  3. IMPLANON [Suspect]

REACTIONS (4)
  - Device deployment issue [Unknown]
  - Device difficult to use [Recovered/Resolved]
  - No adverse event [Unknown]
  - Product quality issue [Unknown]
